FAERS Safety Report 5781029-8 (Version None)
Quarter: 2008Q2

REPORT INFORMATION
  Report Type: 
  Country: None (occurrence: None)
  Receive Date: 20080618
  Receipt Date: 20080605
  Transmission Date: 20081010
  Serious: Yes (Death)
  Sender: FDA-Public Use
  Company Number: 2008AL004993

PATIENT
  Age: 77 Year
  Sex: Male

DRUGS (3)
  1. DIGOXIN [Suspect]
     Indication: CARDIAC DISORDER
     Dosage: 0.25MG DAILY PO
     Route: 048
  2. ATENOLOL [Concomitant]
  3. IRON [Concomitant]

REACTIONS (2)
  - OVERDOSE [None]
  - SUDDEN DEATH [None]
